FAERS Safety Report 7662260-3 (Version None)
Quarter: 2011Q3

REPORT INFORMATION
  Report Type: 
  Country: None (occurrence: None)
  Receive Date: 20110805
  Receipt Date: 20101227
  Transmission Date: 20111222
  Serious: No
  Sender: FDA-Public Use
  Company Number: US-ABBOTT-10P-163-0693687-00

PATIENT
  Sex: Female
  Weight: 79.45 kg

DRUGS (5)
  1. BENICAR [Concomitant]
     Indication: PRODUCT USED FOR UNKNOWN INDICATION
  2. LANTUS [Concomitant]
     Indication: PRODUCT USED FOR UNKNOWN INDICATION
     Dosage: AT NIGHT
  3. NIASPAN [Suspect]
     Indication: HIGH DENSITY LIPOPROTEIN DECREASED
     Dates: start: 20100801
  4. METFORMIN HCL [Concomitant]
     Indication: DIABETES MELLITUS
  5. UNKNOWN MEDICATION [Concomitant]
     Indication: DIABETES MELLITUS

REACTIONS (5)
  - VOMITING [None]
  - DIARRHOEA [None]
  - SYNCOPE [None]
  - FLUSHING [None]
  - PHOTOPSIA [None]
